FAERS Safety Report 13066603 (Version 1)
Quarter: 2016Q4

REPORT INFORMATION
  Report Type: Report from Study
  Country: US (occurrence: US)
  Receive Date: 20161227
  Receipt Date: 20161227
  Transmission Date: 20170207
  Serious: No
  Sender: FDA-Public Use
  Company Number: US-009507513-1612USA010840

PATIENT
  Sex: Female

DRUGS (2)
  1. DEXAMETHASONE (+) LENALIDOMIDE (LOW DOSE) (REV-DEX) [Suspect]
     Active Substance: DEXAMETHASONE\LENALIDOMIDE
  2. DEXAMETHASONE. [Suspect]
     Active Substance: DEXAMETHASONE
     Indication: PLASMA CELL MYELOMA
     Dosage: UNK
     Dates: start: 201509

REACTIONS (1)
  - Adverse event [Unknown]
